FAERS Safety Report 24937932 (Version 1)
Quarter: 2025Q1

REPORT INFORMATION
  Report Type: Report from Study
  Country: US (occurrence: US)
  Receive Date: 20250206
  Receipt Date: 20250206
  Transmission Date: 20250409
  Serious: Yes (Other)
  Sender: ALEXION PHARMACEUTICALS
  Company Number: US-AstraZeneca-CH-00797550A

PATIENT

DRUGS (1)
  1. OLAPARIB [Suspect]
     Active Substance: OLAPARIB
     Indication: Breast cancer female

REACTIONS (11)
  - Full blood count abnormal [Unknown]
  - Subcutaneous abscess [Unknown]
  - Blood glucose abnormal [Unknown]
  - Decreased appetite [Unknown]
  - Brain fog [Unknown]
  - Pollakiuria [Unknown]
  - Neuropathy peripheral [Unknown]
  - Hair growth abnormal [Unknown]
  - Urinary tract infection [Unknown]
  - Product dose omission issue [Unknown]
  - Thirst [Unknown]
